FAERS Safety Report 12806128 (Version 3)
Quarter: 2017Q2

REPORT INFORMATION
  Report Type: Report from Study
  Country: CA (occurrence: CA)
  Receive Date: 20161004
  Receipt Date: 20170405
  Transmission Date: 20170830
  Serious: Yes (Other)
  Sender: FDA-Public Use
  Company Number: CA-GLAXOSMITHKLINE-CA2016GSK084842

PATIENT
  Age: 45 Year
  Sex: Female

DRUGS (17)
  1. NAPROXEN. [Concomitant]
     Active Substance: NAPROXEN
  2. IBUPROFEN. [Concomitant]
     Active Substance: IBUPROFEN
  3. SULFASALAZINE. [Concomitant]
     Active Substance: SULFASALAZINE
  4. COSENTYX [Suspect]
     Active Substance: SECUKINUMAB
     Indication: ANKYLOSING SPONDYLITIS
     Dosage: 150 MG, WE
     Route: 058
     Dates: start: 20160601, end: 20160622
  5. PREDNISONE. [Concomitant]
     Active Substance: PREDNISONE
     Indication: PRODUCT USED FOR UNKNOWN INDICATION
     Dosage: 10 MG, UNK
     Route: 065
     Dates: start: 20120101
  6. OMEPRAZOLE. [Concomitant]
     Active Substance: OMEPRAZOLE
     Indication: PRODUCT USED FOR UNKNOWN INDICATION
     Dosage: UNK
     Route: 065
     Dates: start: 20150101
  7. HYDROMORPH CONTIN [Concomitant]
     Active Substance: HYDROMORPHONE
     Indication: PRODUCT USED FOR UNKNOWN INDICATION
     Dosage: 12 MG, UNK
     Route: 065
     Dates: start: 20091001
  8. DILAUDID [Concomitant]
     Active Substance: HYDROMORPHONE HYDROCHLORIDE
     Indication: PRODUCT USED FOR UNKNOWN INDICATION
     Dosage: 4 MG, UNK
     Route: 065
     Dates: start: 20091001
  9. PALAFER [Concomitant]
     Active Substance: FERROUS FUMARATE
  10. COSENTYX [Suspect]
     Active Substance: SECUKINUMAB
     Dosage: 150 MG, QMO
     Route: 058
     Dates: start: 20160629
  11. COSENTYX [Suspect]
     Active Substance: SECUKINUMAB
     Dosage: 150 MG, QMO
     Route: 058
     Dates: start: 201702
  12. OTEZLA [Concomitant]
     Active Substance: APREMILAST
     Dosage: 30 MG, UNK
     Dates: start: 20160101
  13. ENBREL [Concomitant]
     Active Substance: ETANERCEPT
     Dosage: UNK
     Dates: end: 20120601
  14. DICLOFENAC [Suspect]
     Active Substance: DICLOFENAC
     Indication: PRODUCT USED FOR UNKNOWN INDICATION
     Dosage: 75 MG, BID
     Route: 048
  15. VITAMIN C [Concomitant]
     Active Substance: ASCORBIC ACID
  16. CLINORIL [Concomitant]
     Active Substance: SULINDAC
  17. INDOMETHACIN. [Concomitant]
     Active Substance: INDOMETHACIN

REACTIONS (5)
  - Haemoglobin decreased [Unknown]
  - Injection site swelling [Unknown]
  - Nasopharyngitis [Unknown]
  - Melaena [Unknown]
  - Alopecia [Unknown]

NARRATIVE: CASE EVENT DATE: 201606
